FAERS Safety Report 5975942 (Version 2)
Quarter: 2019Q2

REPORT INFORMATION
  Report Type: Spontaneous
  Country: FR (occurrence: FR)
  Receive Date: 20060203
  Receipt Date: 20190402
  Transmission Date: 20190711
  Serious: Yes (Hospitalization)
  Sender: FDA-Public Use
  Company Number: FR-JNJFOC-20060105937

PATIENT
  Age: 81 Year
  Sex: Male
  Weight: 65 kg

DRUGS (9)
  1. MOPRAL [Concomitant]
     Active Substance: OMEPRAZOLE
     Indication: ILL-DEFINED DISORDER
     Route: 048
     Dates: end: 20051013
  2. DOMPERIDONE [Concomitant]
     Active Substance: DOMPERIDONE
     Indication: ILL-DEFINED DISORDER
     Route: 048
     Dates: end: 20051013
  3. TARDYFERON [Concomitant]
     Active Substance: FERROUS SULFATE
     Indication: ILL-DEFINED DISORDER
     Route: 048
     Dates: end: 20051013
  4. MOVICOL [Concomitant]
     Active Substance: POLYETHYLENE GLYCOL 3350\POTASSIUM CHLORIDE\SODIUM BICARBONATE\SODIUM CHLORIDE
     Indication: ILL-DEFINED DISORDER
     Dosage: UNK, AS NEEDED
     Route: 048
     Dates: end: 20051013
  5. TERCIAN [Suspect]
     Active Substance: CYAMEMAZINE
     Indication: ILL-DEFINED DISORDER
     Dosage: CUMULATIVE DOSE TO FIRST REACTION(NO.) 7550
     Route: 048
     Dates: start: 20050516, end: 20051013
  6. FLUVOXAMINE MALEATE. [Suspect]
     Active Substance: FLUVOXAMINE MALEATE
     Indication: ILL-DEFINED DISORDER
     Dosage: CUMULATIVE DOSE TO FIRST REACTION(NO.)??15100
     Route: 048
     Dates: start: 20050516, end: 20051013
  7. NOOTROPYL [Concomitant]
     Active Substance: PIRACETAM
     Indication: ILL-DEFINED DISORDER
     Dosage: CUMULATIVE DOSE TO FIRST REACTION(NO.)??648000
     Route: 048
     Dates: start: 20050115, end: 20051013
  8. IXPRIM [Suspect]
     Active Substance: ACETAMINOPHEN\TRAMADOL HYDROCHLORIDE
     Indication: ILL-DEFINED DISORDER
     Route: 048
     Dates: start: 20050415, end: 20051013
  9. FONZYLANE [Concomitant]
     Active Substance: BUFLOMEDIL
     Indication: ILL-DEFINED DISORDER
     Route: 048
     Dates: end: 20051013

REACTIONS (7)
  - Altered state of consciousness [Recovered/Resolved]
  - Gait disturbance [Recovered/Resolved]
  - Somnolence [Recovered/Resolved]
  - Fall [Recovered/Resolved]
  - Renal impairment [Unknown]
  - Disorientation [Recovered/Resolved]
  - Asthenia [Recovered/Resolved]

NARRATIVE: CASE EVENT DATE: 200510
